FAERS Safety Report 8401319-X (Version None)
Quarter: 2012Q2

REPORT INFORMATION
  Report Type: 
  Country: None (occurrence: None)
  Receive Date: 20120530
  Receipt Date: 20120530
  Transmission Date: 20120825
  Serious: Yes (Other)
  Sender: FDA-Public Use
  Company Number: None

PATIENT
  Age: 58 Year
  Sex: Female
  Weight: 95.709 kg

DRUGS (10)
  1. MULTI-VITAMIN [Concomitant]
  2. PAROXETINE [Concomitant]
  3. PROCHLORPERAZINE MALEATE [Concomitant]
  4. BENADRYL [Concomitant]
  5. DEXAMETHASONE [Concomitant]
  6. CALCIUM [Concomitant]
  7. VITAMIN D2 [Concomitant]
  8. YERVOY [Suspect]
     Indication: METASTATIC MALIGNANT MELANOMA
     Dosage: 3MG/KG OR 291MG EVERY 3 WEEKS IV
     Route: 042
     Dates: start: 20120426
  9. YERVOY [Suspect]
     Indication: METASTATIC MALIGNANT MELANOMA
     Dosage: 3MG/KG OR 291MG EVERY 3 WEEKS IV
     Route: 042
     Dates: start: 20120517
  10. TRIAMCINOLONE [Concomitant]

REACTIONS (2)
  - RASH GENERALISED [None]
  - RASH PRURITIC [None]
